FAERS Safety Report 14111690 (Version 1)
Quarter: 2017Q4

REPORT INFORMATION
  Report Type: Report from Study
  Country: RU (occurrence: RU)
  Receive Date: 20171020
  Receipt Date: 20171020
  Transmission Date: 20180321
  Serious: Yes (Hospitalization)
  Sender: FDA-Public Use
  Company Number: RU-PFIZER INC-2017448159

PATIENT
  Age: 28 Year
  Sex: Male
  Weight: 100 kg

DRUGS (9)
  1. 5-FLUOROURACIL /00098801/ [Suspect]
     Active Substance: FLUOROURACIL
     Dosage: 400 MG/M2, UNK
     Route: 040
     Dates: start: 20150819
  2. 5-FLUOROURACIL /00098801/ [Suspect]
     Active Substance: FLUOROURACIL
     Dosage: 2400 MG/M2, UNK
     Route: 042
     Dates: start: 20150819
  3. BLINDED THERAPY [Suspect]
     Active Substance: INVESTIGATIONAL PRODUCT
     Indication: COLORECTAL CANCER
     Dosage: DAYS (-) 2 THROUGH 5 OF 14 DAY CYCLE (2 IN 1 D)
     Route: 048
     Dates: start: 20150608, end: 20150729
  4. 5-FLUOROURACIL /00098801/ [Suspect]
     Active Substance: FLUOROURACIL
     Indication: COLORECTAL CANCER
     Dosage: 400 MG/M2, OVER 15 MINUTES; DAY 1 OF EACH 14 DAY CYCLE
     Route: 040
     Dates: start: 20150610, end: 20150724
  5. 5-FLUOROURACIL /00098801/ [Suspect]
     Active Substance: FLUOROURACIL
     Dosage: 2400 MG/M2, OVER 46 HOURS; DAY 1 OF EACH 14 DAY CYCLE
     Route: 042
     Dates: start: 20150610, end: 20170726
  6. LEUCOVORIN /00566701/ [Concomitant]
     Active Substance: LEUCOVORIN
     Indication: COLORECTAL CANCER
     Dosage: 400 MG/M2, 1 IN 2 WK
     Route: 042
     Dates: start: 20150610
  7. IRINOTECAN HCL [Suspect]
     Active Substance: IRINOTECAN HYDROCHLORIDE
     Indication: COLORECTAL CANCER
     Dosage: DAY 1 OF EACH 14 DAY CYCLE (180 MG/M2, 1 IN 2 WK)
     Route: 042
     Dates: start: 20150610, end: 20150724
  8. IRINOTECAN HCL [Suspect]
     Active Substance: IRINOTECAN HYDROCHLORIDE
     Dosage: DAY 1 OF EACH 14 DAY CYCLE (180 MG/M2, 1 IN 2 WK)
     Route: 042
     Dates: start: 20150819
  9. BLINDED THERAPY [Suspect]
     Active Substance: INVESTIGATIONAL PRODUCT
     Dosage: DAYS (-) 2 THROUGH 5 OF 14 DAY CYCLE (2 IN 1 D)
     Route: 048
     Dates: start: 20150817

REACTIONS (1)
  - Hepatotoxicity [Recovered/Resolved]

NARRATIVE: CASE EVENT DATE: 20150806
